FAERS Safety Report 6598698-5 (Version None)
Quarter: 2010Q1

REPORT INFORMATION
  Report Type: 
  Country: None (occurrence: None)
  Receive Date: 20100224
  Receipt Date: 20100105
  Transmission Date: 20100710
  Serious: Yes (Death)
  Sender: FDA-Public Use
  Company Number: US-TYCO HEALTHCARE/MALLINCKRODT-T201000471

PATIENT
  Age: 49 Year
  Sex: Female

DRUGS (1)
  1. PAMELOR [Suspect]
     Route: 048

REACTIONS (1)
  - COMPLETED SUICIDE [None]
